FAERS Safety Report 17946100 (Version 2)
Quarter: 2020Q3

REPORT INFORMATION
  Report Type: Report from Study
  Country: IT (occurrence: IT)
  Receive Date: 20200625
  Receipt Date: 20200713
  Transmission Date: 20201103
  Serious: Yes (Hospitalization, Other)
  Sender: FDA-Public Use
  Company Number: IT-MYLANLABS-2020M1059007

PATIENT
  Age: 88 Year
  Sex: Female

DRUGS (4)
  1. KEPPRA [Concomitant]
     Active Substance: LEVETIRACETAM
     Dosage: 500 MILLIGRAM
  2. ARIXTRA [Suspect]
     Active Substance: FONDAPARINUX SODIUM
     Indication: THROMBOSIS PROPHYLAXIS
     Dosage: 1 DOSAGE FORM, QD
     Route: 058
     Dates: start: 20200101, end: 20200304
  3. ZYLORIC [Concomitant]
     Active Substance: ALLOPURINOL
     Dosage: UNK
  4. HUMALOG [Concomitant]
     Active Substance: INSULIN LISPRO
     Dosage: UNK, (100 U/ML)

REACTIONS (2)
  - Subdural haematoma [Unknown]
  - Coma [Unknown]

NARRATIVE: CASE EVENT DATE: 20200304
